FAERS Safety Report 15399845 (Version 1)
Quarter: 2018Q3

REPORT INFORMATION
  Report Type: Spontaneous
  Country: US (occurrence: US)
  Receive Date: 20180918
  Receipt Date: 20180918
  Transmission Date: 20181010
  Serious: Yes (Other)
  Sender: FDA-Public Use
  Company Number: US-ASTRAZENECA-2018SF18592

PATIENT
  Sex: Male

DRUGS (2)
  1. FARXIGA [Suspect]
     Active Substance: DAPAGLIFLOZIN PROPANEDIOL
     Indication: TYPE 2 DIABETES MELLITUS
     Route: 048
     Dates: start: 201804
  2. LISINOPRIL. [Suspect]
     Active Substance: LISINOPRIL
     Dosage: DOSE UNKNOWN
     Route: 048

REACTIONS (4)
  - HIV test positive [Unknown]
  - Glomerular filtration rate decreased [Unknown]
  - Blood creatine increased [Unknown]
  - Renal failure [Recovered/Resolved]
